FAERS Safety Report 16025317 (Version 2)
Quarter: 2019Q1

REPORT INFORMATION
  Report Type: Spontaneous
  Country: US (occurrence: US)
  Receive Date: 20190301
  Receipt Date: 20190307
  Transmission Date: 20190418
  Serious: Yes (Other)
  Sender: FDA-Public Use
  Company Number: US-ASTRAZENECA-2018SF48304

PATIENT
  Age: 27810 Day
  Sex: Female
  Weight: 108 kg

DRUGS (36)
  1. STELARA [Concomitant]
     Active Substance: USTEKINUMAB
  2. TRADJENTA [Concomitant]
     Active Substance: LINAGLIPTIN
  3. CLOBETASOL [Concomitant]
     Active Substance: CLOBETASOL
  4. BENICAR HCT [Concomitant]
     Active Substance: HYDROCHLOROTHIAZIDE\OLMESARTAN MEDOXOMIL
  5. LEVOTHYROXINE. [Concomitant]
     Active Substance: LEVOTHYROXINE
  6. BENICAR [Concomitant]
     Active Substance: OLMESARTAN MEDOXOMIL
  7. VITAMIN B12 [Concomitant]
     Active Substance: CYANOCOBALAMIN
  8. PRILOSEC [Suspect]
     Active Substance: OMEPRAZOLE MAGNESIUM
     Route: 048
     Dates: start: 201302, end: 201810
  9. GLIPIZIDE. [Concomitant]
     Active Substance: GLIPIZIDE
  10. FLUOXETIN [Concomitant]
     Active Substance: FLUOXETINE HYDROCHLORIDE
  11. AMLODIPINE [Concomitant]
     Active Substance: AMLODIPINE BESYLATE
  12. LORAZEPAM. [Concomitant]
     Active Substance: LORAZEPAM
  13. KLOR-CON [Concomitant]
     Active Substance: POTASSIUM CHLORIDE
  14. PRILOSEC [Suspect]
     Active Substance: OMEPRAZOLE MAGNESIUM
     Dosage: GENERIC
     Route: 065
     Dates: start: 20161121
  15. PRILOSEC [Suspect]
     Active Substance: OMEPRAZOLE MAGNESIUM
     Route: 048
  16. AZITHROMYCIN ANHYDROUS. [Concomitant]
     Active Substance: AZITHROMYCIN ANHYDROUS
  17. METFORMIN [Concomitant]
     Active Substance: METFORMIN HYDROCHLORIDE
  18. OXYCODONE [Concomitant]
     Active Substance: OXYCODONE
  19. FLUOXETINE [Concomitant]
     Active Substance: FLUOXETINE HYDROCHLORIDE
  20. PROTONIX [Suspect]
     Active Substance: PANTOPRAZOLE SODIUM
     Route: 065
     Dates: start: 201302, end: 201810
  21. ATORVASTATIN [Concomitant]
     Active Substance: ATORVASTATIN
  22. CLOBETASOL [Concomitant]
     Active Substance: CLOBETASOL
  23. METOPROLOL. [Concomitant]
     Active Substance: METOPROLOL
  24. GLIPIZIDE. [Concomitant]
     Active Substance: GLIPIZIDE
  25. ASPIRIN. [Concomitant]
     Active Substance: ASPIRIN
  26. PRILOSEC OTC [Suspect]
     Active Substance: OMEPRAZOLE MAGNESIUM
     Route: 048
     Dates: start: 201302, end: 201810
  27. OXYCODONE [Concomitant]
     Active Substance: OXYCODONE
  28. HYDROMORPHONE [Concomitant]
     Active Substance: HYDROMORPHONE
  29. VITAMIN D3 [Concomitant]
     Active Substance: CHOLECALCIFEROL
  30. TIZANIDINE. [Concomitant]
     Active Substance: TIZANIDINE
  31. FUROSEMIDE. [Concomitant]
     Active Substance: FUROSEMIDE
  32. HYDROC/APAP [Concomitant]
  33. LIDOCAINE. [Concomitant]
     Active Substance: LIDOCAINE
  34. OLMESARTAN [Concomitant]
     Active Substance: OLMESARTAN
  35. NORVASC [Concomitant]
     Active Substance: AMLODIPINE BESYLATE
  36. NITROGLYCERIN. [Concomitant]
     Active Substance: NITROGLYCERIN

REACTIONS (1)
  - Chronic kidney disease [Unknown]

NARRATIVE: CASE EVENT DATE: 20180417
